FAERS Safety Report 14158175 (Version 2)
Quarter: 2017Q4

REPORT INFORMATION
  Report Type: Spontaneous
  Country: JP (occurrence: JP)
  Receive Date: 20171103
  Receipt Date: 20171127
  Transmission Date: 20180321
  Serious: Yes (Other)
  Sender: FDA-Public Use
  Company Number: JP-JNJFOC-20171035997

PATIENT
  Age: 30 Month
  Sex: Male
  Weight: 12.4 kg

DRUGS (10)
  1. TOPINA [Suspect]
     Active Substance: TOPIRAMATE
     Indication: INFANTILE SPASMS
     Route: 048
  2. QUINIDINE SULFATE. [Suspect]
     Active Substance: QUINIDINE SULFATE
     Indication: INFANTILE SPASMS
     Route: 048
  3. LAMOTRIGINE. [Suspect]
     Active Substance: LAMOTRIGINE
     Indication: INFANTILE SPASMS
     Route: 048
  4. ZONISAMIDE. [Concomitant]
     Active Substance: ZONISAMIDE
     Indication: INFANTILE SPASMS
     Route: 048
  5. QUINIDINE SULFATE. [Suspect]
     Active Substance: QUINIDINE SULFATE
     Indication: INFANTILE SPASMS
     Route: 048
  6. QUINIDINE SULFATE. [Suspect]
     Active Substance: QUINIDINE SULFATE
     Indication: INFANTILE SPASMS
     Dosage: INCREASED TO 2 MG/KG/DAY EVERY DAY
     Route: 048
  7. SODIUM VALPROATE [Suspect]
     Active Substance: VALPROATE SODIUM
     Indication: INFANTILE SPASMS
     Route: 048
  8. QUINIDINE SULFATE. [Suspect]
     Active Substance: QUINIDINE SULFATE
     Indication: INFANTILE SPASMS
     Route: 048
  9. VITAMIN B6 [Concomitant]
     Active Substance: PYRIDOXINE HYDROCHLORIDE
     Indication: INFANTILE SPASMS
     Route: 065
  10. SODIUM VALPROATE [Suspect]
     Active Substance: VALPROATE SODIUM
     Indication: INFANTILE SPASMS
     Route: 048

REACTIONS (4)
  - Electrocardiogram QT prolonged [Recovered/Resolved]
  - Hypotension [Unknown]
  - Diarrhoea [Recovering/Resolving]
  - Electrocardiogram QT shortened [Unknown]
